FAERS Safety Report 9049369 (Version 2)
Quarter: 2013Q1

REPORT INFORMATION
  Report Type: Spontaneous
  Country: ES (occurrence: ES)
  Receive Date: 20130205
  Receipt Date: 20130311
  Transmission Date: 20140127
  Serious: Yes (Other)
  Sender: FDA-Public Use
  Company Number: ES-GILEAD-2013-0068804

PATIENT
  Age: 45 Year
  Sex: Male

DRUGS (3)
  1. VIREAD [Suspect]
     Indication: HIV INFECTION
  2. EMTRIVA [Suspect]
     Indication: HIV INFECTION
  3. ATAZANAVIR W/RITONAVIR [Suspect]
     Indication: HIV INFECTION

REACTIONS (1)
  - Osteonecrosis [Recovered/Resolved with Sequelae]
